FAERS Safety Report 23323828 (Version 2)
Quarter: 2024Q1

REPORT INFORMATION
  Report Type: Report from Study
  Country: US (occurrence: US)
  Receive Date: 20231220
  Receipt Date: 20240126
  Transmission Date: 20240410
  Serious: Yes (Other)
  Sender: FDA-Public Use
  Company Number: US-ABBVIE-5549082

PATIENT
  Sex: Male

DRUGS (1)
  1. HUMIRA [Suspect]
     Active Substance: ADALIMUMAB
     Indication: Colitis ulcerative
     Dosage: STRENGTH: 40 MILLIGRAM?CITRATE  FREE
     Route: 058
     Dates: start: 20221216

REACTIONS (3)
  - Haemorrhage [Recovering/Resolving]
  - Drug ineffective [Unknown]
  - Cough [Unknown]
